FAERS Safety Report 4591748-7 (Version None)
Quarter: 2005Q1

REPORT INFORMATION
  Report Type: 
  Country: None (occurrence: None)
  Receive Date: 20050125
  Receipt Date: 20040812
  Transmission Date: 20050727
  Serious: No
  Sender: FDA-Public Use
  Company Number: USA040875333

PATIENT
  Age: 93 Year
  Sex: Female
  Weight: 53 kg

DRUGS (6)
  1. FORTEO [Suspect]
     Indication: BONE DISORDER
     Dosage: 20 UG/1 DAY
     Dates: start: 20040801, end: 20040811
  2. DARVOCET [Suspect]
     Indication: MYALGIA
     Dosage: 650 MG AS NEEDED
     Dates: start: 20040802
  3. LANOXIN [Concomitant]
  4. GLUCOSAMINE [Concomitant]
  5. MIACALCIN [Concomitant]
  6. TYLENOL [Concomitant]

REACTIONS (4)
  - ASTHENIA [None]
  - CONTUSION [None]
  - FALL [None]
  - MYALGIA [None]
